FAERS Safety Report 12757651 (Version 1)
Quarter: 2016Q3

REPORT INFORMATION
  Report Type: Spontaneous
  Country: US (occurrence: US)
  Receive Date: 20160919
  Receipt Date: 20160919
  Transmission Date: 20161109
  Serious: No
  Sender: FDA-Public Use
  Company Number: US-009507513-1609USA008344

PATIENT
  Age: 55 Year
  Sex: Female

DRUGS (1)
  1. KEYTRUDA [Suspect]
     Active Substance: PEMBROLIZUMAB
     Indication: OVARIAN CANCER
     Dosage: 105 MG, Q3W
     Route: 042
     Dates: start: 201608, end: 20160913

REACTIONS (2)
  - Hospice care [Unknown]
  - Product use issue [Unknown]

NARRATIVE: CASE EVENT DATE: 201608
